FAERS Safety Report 12630414 (Version 1)
Quarter: 2016Q3

REPORT INFORMATION
  Report Type: Spontaneous
  Country: JP (occurrence: JP)
  Receive Date: 20160808
  Receipt Date: 20160808
  Transmission Date: 20161109
  Serious: Yes (Congenital Anomaly)
  Sender: FDA-Public Use
  Company Number: JP-FERRINGPH-2016FE03591

PATIENT

DRUGS (3)
  1. PROGESTERONE. [Suspect]
     Active Substance: PROGESTERONE
     Indication: ASSISTED FERTILISATION
     Dosage: 300 MG, DAILY
     Route: 064
     Dates: start: 20150630, end: 20150722
  2. PREMARIN [Concomitant]
     Active Substance: ESTROGENS, CONJUGATED
     Indication: PREGNANCY
     Dosage: 5 MG, DAILY
     Route: 064
     Dates: start: 20150615, end: 20150722
  3. DUPHASTON [Concomitant]
     Active Substance: DYDROGESTERONE
     Indication: PREGNANCY
     Dosage: 15 MG, DAILY
     Route: 064
     Dates: start: 20150630, end: 20150722

REACTIONS (1)
  - Ventricular septal defect [Recovering/Resolving]

NARRATIVE: CASE EVENT DATE: 20160317
